FAERS Safety Report 6015037-9 (Version None)
Quarter: 2008Q4

REPORT INFORMATION
  Report Type: 
  Country: None (occurrence: None)
  Receive Date: 20081222
  Receipt Date: 20081215
  Transmission Date: 20090506
  Serious: Yes (Hospitalization)
  Sender: FDA-Public Use
  Company Number: US-JNJFOC-20081204154

PATIENT
  Age: 62 Year
  Sex: Female
  Weight: 85.28 kg

DRUGS (5)
  1. CYCLOBENZAPRINE HCL [Suspect]
     Indication: DRUG USE FOR UNKNOWN INDICATION
     Route: 048
  2. VICODIN [Suspect]
     Indication: DRUG USE FOR UNKNOWN INDICATION
     Route: 048
  3. ACETAMINOPHEN [Concomitant]
  4. IBUPROFEN [Concomitant]
  5. ROFECOXIB [Concomitant]
     Indication: ARTHRITIS

REACTIONS (6)
  - BUNDLE BRANCH BLOCK LEFT [None]
  - DIZZINESS [None]
  - HYPOKALAEMIA [None]
  - INTENTIONAL DRUG MISUSE [None]
  - NAUSEA [None]
  - SYNCOPE [None]
